FAERS Safety Report 9147861 (Version 1)
Quarter: 2013Q1

REPORT INFORMATION
  Report Type: Spontaneous
  Country: US (occurrence: US)
  Receive Date: 20130307
  Receipt Date: 20130307
  Transmission Date: 20140127
  Serious: Yes (Other)
  Sender: FDA-Public Use
  Company Number: CHPA2013US003801

PATIENT
  Age: 53 Year
  Sex: Female

DRUGS (3)
  1. KERI ORIGINAL [Suspect]
     Indication: PAIN IN EXTREMITY
     Dosage: UNK, UNK
     Route: 061
  2. KERI ORIGINAL [Suspect]
     Indication: OEDEMA PERIPHERAL
  3. SWEEN [Concomitant]
     Dosage: UNK, UNK
     Route: 061

REACTIONS (8)
  - Renal failure [Not Recovered/Not Resolved]
  - Foot fracture [Not Recovered/Not Resolved]
  - Localised infection [Not Recovered/Not Resolved]
  - Mass [Unknown]
  - Local swelling [Unknown]
  - Pain in extremity [Not Recovered/Not Resolved]
  - Therapeutic response unexpected [Unknown]
  - Off label use [Unknown]
